FAERS Safety Report 25259020 (Version 1)
Quarter: 2025Q2

REPORT INFORMATION
  Report Type: Spontaneous
  Country: SE (occurrence: SE)
  Receive Date: 20250501
  Receipt Date: 20250501
  Transmission Date: 20250717
  Serious: Yes (Life-Threatening, Other)
  Sender: AUROBINDO
  Company Number: SE-SEMPA-2025-002892

PATIENT
  Age: 27 Year
  Sex: Male
  Weight: 116 kg

DRUGS (7)
  1. OLANZAPINE [Suspect]
     Active Substance: OLANZAPINE
     Indication: Bipolar disorder
     Dosage: 15 MILLIGRAM, ONCE A DAY
     Route: 065
     Dates: start: 20250226, end: 20250331
  2. OLANZAPINE [Suspect]
     Active Substance: OLANZAPINE
     Route: 065
     Dates: start: 20250226, end: 20250331
  3. TRILAFON [Suspect]
     Active Substance: PERPHENAZINE
     Indication: Bipolar disorder
     Route: 030
     Dates: start: 20210430, end: 20250331
  4. PROPIOMAZINE [Suspect]
     Active Substance: PROPIOMAZINE
     Indication: Sleep disorder
     Dosage: 50 MILLIGRAM, ONCE A DAY (TWO IN THE EVENING)
     Route: 065
     Dates: start: 20250227, end: 20250331
  5. LEVOMEPROMAZINE [Suspect]
     Active Substance: LEVOMEPROMAZINE
     Indication: Psychotic symptom
     Route: 065
     Dates: start: 20250325, end: 20250331
  6. LEVOMEPROMAZINE [Suspect]
     Active Substance: LEVOMEPROMAZINE
     Indication: Agitation
  7. ARIPIPRAZOLE [Suspect]
     Active Substance: ARIPIPRAZOLE
     Indication: Bipolar disorder
     Dosage: 20 MILLIGRAM, ONCE A DAY (2 TABLETS IN THE MORNING)
     Route: 065
     Dates: start: 20250307, end: 20250331

REACTIONS (6)
  - Neuroleptic malignant syndrome [Recovering/Resolving]
  - Conjunctival hyperaemia [Unknown]
  - Abdominal pain [Unknown]
  - Miosis [Unknown]
  - Constipation [Unknown]
  - Product use in unapproved indication [Unknown]

NARRATIVE: CASE EVENT DATE: 20210430
